FAERS Safety Report 22098951 (Version 2)
Quarter: 2023Q1

REPORT INFORMATION
  Report Type: Spontaneous
  Country: BD (occurrence: BD)
  Receive Date: 20230315
  Receipt Date: 20230317
  Transmission Date: 20230417
  Serious: Yes (Other)
  Sender: FDA-Public Use
  Company Number: BD-002147023-NVSC2023BD055093

PATIENT
  Age: 32 Year
  Sex: Male

DRUGS (1)
  1. DICLOFENAC [Suspect]
     Active Substance: DICLOFENAC
     Indication: Pain
     Dosage: 50 MG, TID
     Route: 054

REACTIONS (2)
  - Rectal haemorrhage [Recovered/Resolved]
  - Pruritus [Recovered/Resolved]
